FAERS Safety Report 13377960 (Version 2)
Quarter: 2017Q2

REPORT INFORMATION
  Report Type: Spontaneous
  Country: IT (occurrence: IT)
  Receive Date: 20170328
  Receipt Date: 20170407
  Transmission Date: 20170830
  Serious: Yes (Other)
  Sender: FDA-Public Use
  Company Number: IT-ASTRAZENECA-2017SE29717

PATIENT
  Age: 15649 Day
  Sex: Female

DRUGS (3)
  1. VALDORM (FLURAZEPAM HYDROCHLORIDE) [Suspect]
     Active Substance: FLURAZEPAM HYDROCHLORIDE
     Indication: INTENTIONAL SELF-INJURY
     Route: 048
     Dates: start: 20161206, end: 20161206
  2. SEROQUEL [Suspect]
     Active Substance: QUETIAPINE FUMARATE
     Indication: INTENTIONAL SELF-INJURY
     Route: 048
     Dates: start: 20161206, end: 20161206
  3. LORAZEPAM. [Suspect]
     Active Substance: LORAZEPAM
     Indication: INTENTIONAL SELF-INJURY
     Route: 048
     Dates: start: 20161206, end: 20161206

REACTIONS (3)
  - Intentional overdose [Unknown]
  - Intentional self-injury [Unknown]
  - Suicide attempt [Unknown]

NARRATIVE: CASE EVENT DATE: 20161206
